FAERS Safety Report 20709587 (Version 1)
Quarter: 2022Q2

REPORT INFORMATION
  Report Type: Spontaneous
  Country: US (occurrence: None)
  Receive Date: 20220414
  Receipt Date: 20220414
  Transmission Date: 20220721
  Serious: Yes (Hospitalization)
  Sender: FDA-Public Use
  Company Number: None

PATIENT
  Sex: Male
  Weight: 109.3 kg

DRUGS (1)
  1. CISPLATIN [Suspect]
     Active Substance: CISPLATIN

REACTIONS (11)
  - Pulmonary embolism [None]
  - Hypotension [None]
  - Dizziness [None]
  - Pollakiuria [None]
  - Hypophagia [None]
  - Cough [None]
  - Productive cough [None]
  - Respiratory distress [None]
  - Hypercoagulation [None]
  - Left ventricular hypertrophy [None]
  - Ejection fraction decreased [None]

NARRATIVE: CASE EVENT DATE: 20220405
